FAERS Safety Report 7353120-6 (Version None)
Quarter: 2011Q1

REPORT INFORMATION
  Report Type: 
  Country: None (occurrence: None)
  Receive Date: 20110315
  Receipt Date: 20110301
  Transmission Date: 20110831
  Serious: Yes (Other)
  Sender: FDA-Public Use
  Company Number: US-ELI_LILLY_AND_COMPANY-US201011003155

PATIENT
  Sex: Female
  Weight: 43.084 kg

DRUGS (14)
  1. DEXAMETHASONE [Concomitant]
     Dosage: 4 MG, 2/D
     Route: 048
     Dates: start: 20091007
  2. MEGESTROL ACETATE [Concomitant]
     Dosage: 800 MG, DAILY (1/D)
     Route: 048
  3. ALBUTEROL SULFATE [Concomitant]
     Indication: DYSPNOEA
     Dosage: 2.5 MG, AS NEEDED
     Route: 055
  4. OXYGEN [Concomitant]
     Dosage: 3 LITER, UNK
  5. PERCOCET [Concomitant]
     Indication: PAIN
     Dosage: UNK, AS NEEDED
     Route: 048
  6. VITAMIN B-12 [Concomitant]
     Dosage: 1000 UG, UNK
     Route: 058
     Dates: start: 20091007
  7. GUAIFENESIN [Concomitant]
     Indication: COUGH
     Dosage: 100 MG, AS NEEDED
     Route: 048
  8. VENTOLIN HFA [Concomitant]
     Dosage: 2 D/F, DAILY (1/D)
     Route: 055
  9. IPRATROPIUM BROMIDE [Concomitant]
     Indication: DYSPNOEA
     Dosage: UNK, AS NEEDED
     Route: 055
  10. FOLIC ACID [Concomitant]
     Dosage: 1 MG, DAILY (1/D)
     Route: 048
     Dates: start: 20091007
  11. ATROVENT [Concomitant]
     Dosage: UNK, UNKNOWN
     Route: 065
  12. ALIMTA [Suspect]
     Indication: LUNG ADENOCARCINOMA STAGE IV
     Dosage: 700 MG/1.5MM2, EVERY 21 DAYS
     Route: 042
     Dates: start: 20091014, end: 20101124
  13. TIOTROPIUM BROMIDE [Concomitant]
     Dosage: 19 UG, 2/D
  14. ALIMTA [Suspect]
     Dosage: 700 MG/1.5MM2, EVERY 21 DAYS
     Route: 065
     Dates: start: 20091007

REACTIONS (1)
  - VASCULITIS NECROTISING [None]
